FAERS Safety Report 22131549 (Version 1)
Quarter: 2023Q1

REPORT INFORMATION
  Report Type: Spontaneous
  Country: FI (occurrence: FI)
  Receive Date: 20230323
  Receipt Date: 20230323
  Transmission Date: 20230418
  Serious: Yes (Hospitalization)
  Sender: FDA-Public Use
  Company Number: None

PATIENT
  Age: 52 Year
  Sex: Male

DRUGS (1)
  1. TECENTRIQ [Suspect]
     Active Substance: ATEZOLIZUMAB
     Indication: Transitional cell carcinoma urethra
     Dosage: 1200,MG,X1
     Route: 042
     Dates: start: 20221228, end: 20221228

REACTIONS (4)
  - Musculoskeletal stiffness [Recovered/Resolved with Sequelae]
  - Confusional state [Recovered/Resolved with Sequelae]
  - Immune-mediated neurological disorder [Recovered/Resolved with Sequelae]
  - Muscular weakness [Recovered/Resolved with Sequelae]

NARRATIVE: CASE EVENT DATE: 20230112
